FAERS Safety Report 7451227-6 (Version None)
Quarter: 2011Q2

REPORT INFORMATION
  Report Type: 
  Country: None (occurrence: None)
  Receive Date: 20110502
  Receipt Date: 20110422
  Transmission Date: 20111010
  Serious: Yes (Hospitalization)
  Sender: FDA-Public Use
  Company Number: US-ASTRAZENECA-2011SE23255

PATIENT
  Age: 63 Year
  Sex: Female

DRUGS (6)
  1. TOPROL-XL [Suspect]
     Indication: HYPERTENSION
     Route: 048
     Dates: start: 20060101
  2. PRINIVIL [Suspect]
     Route: 065
     Dates: start: 20090101
  3. NUVIGIL [Concomitant]
  4. ARMOUR THYROID SUPPLEMENT [Concomitant]
  5. HALCION [Concomitant]
  6. NORVASC [Concomitant]

REACTIONS (6)
  - DYSPNOEA [None]
  - CHEST DISCOMFORT [None]
  - BLOOD PRESSURE INADEQUATELY CONTROLLED [None]
  - DRUG PRESCRIBING ERROR [None]
  - ADVERSE DRUG REACTION [None]
  - PALPITATIONS [None]
